FAERS Safety Report 9518981 (Version 2)
Quarter: 2013Q3

REPORT INFORMATION
  Report Type: Spontaneous
  Country: FR (occurrence: FR)
  Receive Date: 20130912
  Receipt Date: 20130923
  Transmission Date: 20140515
  Serious: Yes (Life-Threatening, Hospitalization)
  Sender: FDA-Public Use
  Company Number: FR-ELI_LILLY_AND_COMPANY-FR201309000314

PATIENT
  Age: 73 Year
  Sex: Female

DRUGS (8)
  1. ZYPREXA [Suspect]
     Indication: BIPOLAR DISORDER
     Dosage: 1 DF, UNKNOWN
     Route: 048
  2. DEPAKOTE [Suspect]
     Indication: BIPOLAR DISORDER
     Dosage: 1 DF, UNKNOWN
     Route: 048
  3. LUDIOMIL /SCH/ [Suspect]
     Indication: DEPRESSION
     Dosage: 1 DF, UNKNOWN
     Route: 048
  4. KARDEGIC [Suspect]
     Indication: VASCULAR DEMENTIA
     Dosage: 1 DF, UNKNOWN
     Dates: start: 20130608
  5. INEXIUM [Suspect]
     Indication: GASTROOESOPHAGEAL REFLUX DISEASE
     Dosage: 1 DF, UNKNOWN
     Route: 048
  6. INEXIUM [Suspect]
     Dosage: 40 MG, QD
  7. CERIS [Suspect]
     Indication: URINARY INCONTINENCE
     Dosage: 1 DF, UNKNOWN
     Route: 048
  8. COZAAR [Suspect]
     Indication: HYPERTENSION
     Dosage: 1 DF, UNKNOWN
     Route: 048

REACTIONS (6)
  - Shock haemorrhagic [Recovered/Resolved with Sequelae]
  - Anaemia [Not Recovered/Not Resolved]
  - Lower limb fracture [Unknown]
  - Oesophageal ulcer [Recovered/Resolved]
  - Haematemesis [Unknown]
  - Thrombophlebitis [Unknown]
